FAERS Safety Report 12690380 (Version 1)
Quarter: 2016Q3

REPORT INFORMATION
  Report Type: Report from Study
  Country: AU (occurrence: AU)
  Receive Date: 20160826
  Receipt Date: 20160826
  Transmission Date: 20161109
  Serious: Yes (Other)
  Sender: FDA-Public Use
  Company Number: AU-REGENERON PHARMACEUTICALS, INC.-2016-20850

PATIENT

DRUGS (1)
  1. EYLEA [Suspect]
     Active Substance: AFLIBERCEPT
     Indication: NEOVASCULAR AGE-RELATED MACULAR DEGENERATION
     Dosage: 2 MG, DOSE REGIMEN: 6 WEEKLY
     Route: 031
     Dates: start: 20141210

REACTIONS (6)
  - Ocular hyperaemia [Recovering/Resolving]
  - Dry age-related macular degeneration [Unknown]
  - Foreign body sensation in eyes [Recovered/Resolved]
  - Product use issue [Unknown]
  - Eye colour change [Not Recovered/Not Resolved]
  - Visual impairment [Unknown]

NARRATIVE: CASE EVENT DATE: 20141210
